FAERS Safety Report 16237470 (Version 2)
Quarter: 2019Q2

REPORT INFORMATION
  Report Type: Spontaneous
  Country: ES (occurrence: ES)
  Receive Date: 20190425
  Receipt Date: 20190507
  Transmission Date: 20190711
  Serious: Yes (Other)
  Sender: FDA-Public Use
  Company Number: ES-MYLANLABS-2019M1039167

PATIENT
  Age: 87 Year
  Sex: Female
  Weight: 40.82 kg

DRUGS (21)
  1. MANIDIPINE [Suspect]
     Active Substance: MANIDIPINE
     Indication: PRODUCT USED FOR UNKNOWN INDICATION
     Dosage: 10 MILLIGRAM (10MG 28 TABLETS)
  2. CARVEDILOL. [Suspect]
     Active Substance: CARVEDILOL
     Indication: PRODUCT USED FOR UNKNOWN INDICATION
     Dosage: 6.25 MILLIGRAM (6,25MG 28 TABLETS )
  3. FENTANYL. [Suspect]
     Active Substance: FENTANYL
     Indication: GENERAL ANAESTHESIA
     Dosage: UNK
     Route: 062
     Dates: start: 201810
  4. OMEPRAZOLE. [Suspect]
     Active Substance: OMEPRAZOLE
     Indication: PRODUCT USED FOR UNKNOWN INDICATION
     Dosage: 20MG 28 CAPSULES
  5. PROPOFOL. [Suspect]
     Active Substance: PROPOFOL
     Indication: GENERAL ANAESTHESIA
     Dosage: UNK
     Route: 065
     Dates: start: 201810
  6. DESFLURANE. [Suspect]
     Active Substance: DESFLURANE
     Indication: GENERAL ANAESTHESIA
     Dosage: UNK
     Route: 065
     Dates: start: 201810
  7. BRIDION [Suspect]
     Active Substance: SUGAMMADEX
     Dosage: 2 MILLIGRAM/KILOGRAM, TOTAL (2 MG/KG, (180 MG), SINGLE)
     Route: 042
     Dates: start: 20181006, end: 20181006
  8. LORAZEPAM. [Suspect]
     Active Substance: LORAZEPAM
     Indication: PRODUCT USED FOR UNKNOWN INDICATION
     Dosage: 5 MILLIGRAM (5MG 20 TABLETS)
  9. PROLIA [Suspect]
     Active Substance: DENOSUMAB
     Indication: PRODUCT USED FOR UNKNOWN INDICATION
     Dosage: 60MG SOLUTION FOR INJECTION 1 PRE-FILLED SYRINGE 1ML
  10. TORASEMIDE [Suspect]
     Active Substance: TORSEMIDE
     Indication: PRODUCT USED FOR UNKNOWN INDICATION
     Dosage: 5MG 30 TABLETS
  11. ROCURONIUM BROMIDE. [Suspect]
     Active Substance: ROCURONIUM BROMIDE
     Indication: GENERAL ANAESTHESIA
     Dosage: UNK
     Dates: start: 201810
  12. DEPRAX                             /00724402/ [Suspect]
     Active Substance: FLUOXETINE HYDROCHLORIDE
     Indication: PRODUCT USED FOR UNKNOWN INDICATION
     Dosage: 100 MILLIGRAM
  13. CAFINITRINA                        /07893501/ [Suspect]
     Active Substance: CAFFEINE CITRATE\NITROGLYCERIN
     Indication: PRODUCT USED FOR UNKNOWN INDICATION
     Dosage: 20 TABLETS
  14. HALOPERIDOL. [Suspect]
     Active Substance: HALOPERIDOL
     Indication: PRODUCT USED FOR UNKNOWN INDICATION
     Dosage: 2 MILLIGRAM PER MILLILITRE (2 MG/ML ORAL SOLUTION/SUSPENSION DROPS, 30 ML 1 BOTTLE)
     Route: 048
  15. CIMASCAL D [Suspect]
     Active Substance: CALCIUM CARBONATE\CHOLECALCIFEROL
     Indication: PRODUCT USED FOR UNKNOWN INDICATION
     Dosage: 0MG/400UIU 60 BUCODISPERSIBLE TABLETS
  16. ALPRAZOLAM. [Suspect]
     Active Substance: ALPRAZOLAM
     Indication: PRODUCT USED FOR UNKNOWN INDICATION
     Dosage: 0.5 MG 30 TABLETS
  17. BRIDION [Suspect]
     Active Substance: SUGAMMADEX
     Indication: NEUROMUSCULAR BLOCKADE REVERSAL
     Dosage: 2 MILLIGRAM/KILOGRAM, QD(2 MG/KG, (180 MG), SINGLE)
     Route: 042
     Dates: start: 20181006, end: 20181006
  18. ZARELIS [Suspect]
     Active Substance: VENLAFAXINE HYDROCHLORIDE
     Dosage: 75MG 30
  19. ADIRO [Suspect]
     Active Substance: ASPIRIN
     Indication: PRODUCT USED FOR UNKNOWN INDICATION
     Dosage: 30 TABLETS
  20. CANDESARTAN. [Suspect]
     Active Substance: CANDESARTAN
     Indication: PRODUCT USED FOR UNKNOWN INDICATION
     Dosage: 6MG 28 TABLETS
  21. NITROPLAST [Suspect]
     Active Substance: NITROGLYCERIN
     Indication: PRODUCT USED FOR UNKNOWN INDICATION
     Dosage: 10 MILLIGRAM, QD (10MG/24H 30 TRANSDERMAL PATCHES   )

REACTIONS (2)
  - Cardiac arrest [Recovered/Resolved]
  - Bradycardia [Recovered/Resolved]

NARRATIVE: CASE EVENT DATE: 20181006
